FAERS Safety Report 8935867 (Version 1)
Quarter: 2012Q4

REPORT INFORMATION
  Report Type: 
  Country: US (occurrence: US)
  Receive Date: 20121130
  Receipt Date: 20121130
  Transmission Date: 20130627
  Serious: No
  Sender: FDA-Public Use
  Company Number: US-ABBOTT-12P-163-0995310-00

PATIENT
  Sex: Male
  Weight: 99.88 kg

DRUGS (4)
  1. ANDROGEL [Suspect]
     Indication: BLOOD TESTOSTERONE DECREASED
     Dosage: 1 pump actuations per day
     Dates: start: 201206, end: 201207
  2. ANDROGEL [Suspect]
     Dosage: 2 pump actuations per day
     Dates: start: 201207, end: 201209
  3. ANDROGEL [Suspect]
     Dosage: 4 pump actuation per day
     Dates: start: 20120924
  4. ZYRTEC [Concomitant]
     Indication: SEASONAL ALLERGY

REACTIONS (2)
  - Drug ineffective [Not Recovered/Not Resolved]
  - Blood testosterone decreased [Not Recovered/Not Resolved]
